FAERS Safety Report 8814639 (Version 1)
Quarter: 2012Q4

REPORT INFORMATION
  Report Type: Spontaneous
  Country: AN (occurrence: None)
  Receive Date: 20120926
  Receipt Date: 20120926
  Transmission Date: 20130627
  Serious: Yes (Other)
  Sender: FDA-Public Use
  Company Number: 2012AP003058

PATIENT
  Sex: Male

DRUGS (1)
  1. PAROXETINE [Suspect]

REACTIONS (5)
  - Blood bilirubin increased [None]
  - Migraine [None]
  - Dizziness [None]
  - Nausea [None]
  - Toxicity to various agents [None]
